FAERS Safety Report 10409897 (Version 2)
Quarter: 2014Q4

REPORT INFORMATION
  Report Type: Report from Study
  Country: BW (occurrence: BW)
  Receive Date: 20140826
  Receipt Date: 20141030
  Transmission Date: 20150528
  Serious: Yes (Hospitalization, Other)
  Sender: FDA-Public Use
  Company Number: BW-GILEAD-2014-0112399

PATIENT
  Age: 0 Day
  Sex: Male

DRUGS (6)
  1. LOPINAVIR W/RITONAVIR [Suspect]
     Active Substance: LOPINAVIR\RITONAVIR
     Indication: HIV INFECTION
     Dosage: UNK, BID
     Route: 064
     Dates: start: 20140204, end: 20140721
  2. EMTRICITABINE/TENOFOVIR DISOPROXIL FUMARATE [Suspect]
     Active Substance: EMTRICITABINE\TENOFOVIR DISOPROXIL
     Indication: HIV INFECTION
     Dosage: UNK
     Route: 064
     Dates: end: 20140721
  3. CEFTRIAXONE. [Concomitant]
     Active Substance: CEFTRIAXONE
     Route: 064
  4. CLOTRIMAZOLE. [Concomitant]
     Active Substance: CLOTRIMAZOLE
     Route: 064
  5. EFAVIRENZ [Suspect]
     Active Substance: EFAVIRENZ
     Indication: HIV INFECTION
     Dosage: 600 MG, QD
     Route: 064
     Dates: end: 20140204
  6. ERYTHROMYCIN BASE [Concomitant]
     Active Substance: ERYTHROMYCIN
     Route: 064

REACTIONS (2)
  - Premature baby [Recovering/Resolving]
  - Acute respiratory distress syndrome [Unknown]

NARRATIVE: CASE EVENT DATE: 20140721
